FAERS Safety Report 14482467 (Version 1)
Quarter: 2018Q1

REPORT INFORMATION
  Report Type: Spontaneous
  Country: RU (occurrence: RU)
  Receive Date: 20180202
  Receipt Date: 20180202
  Transmission Date: 20180509
  Serious: Yes (Other)
  Sender: FDA-Public Use
  Company Number: RU-009507513-1705RUS007940

PATIENT
  Age: 39 Year
  Sex: Female

DRUGS (1)
  1. NUVARING [Suspect]
     Active Substance: ETHINYL ESTRADIOL\ETONOGESTREL
     Indication: MENSTRUAL CYCLE MANAGEMENT
     Dosage: 1 RING, UNK
     Route: 067
     Dates: start: 2007

REACTIONS (10)
  - Premature separation of placenta [Unknown]
  - Abortion spontaneous [Recovered/Resolved]
  - Unintended pregnancy [Recovered/Resolved]
  - Dry skin [Unknown]
  - Incorrect drug administration duration [Unknown]
  - Pregnancy with contraceptive device [Recovered/Resolved]
  - Foetal death [Unknown]
  - Nausea [Unknown]
  - Hormone level abnormal [Unknown]
  - Metrorrhagia [Unknown]

NARRATIVE: CASE EVENT DATE: 2017
